FAERS Safety Report 10654348 (Version 1)
Quarter: 2014Q4

REPORT INFORMATION
  Report Type: Spontaneous
  Country: US (occurrence: None)
  Receive Date: 20141215
  Receipt Date: 20141215
  Transmission Date: 20150529
  Serious: Yes (Life-Threatening)
  Sender: FDA-Public Use
  Company Number: None

PATIENT
  Age: 81 Year
  Sex: Female
  Weight: 168 kg

DRUGS (1)
  1. LOSARTAN POTASSIUM. [Suspect]
     Active Substance: LOSARTAN POTASSIUM
     Indication: HYPERTENSION
     Dosage: 2 A.M/1 P.M TAKEN BY MOUTH
     Route: 048
     Dates: start: 20140530, end: 20140703

REACTIONS (6)
  - Dyspnoea [None]
  - Cardiac failure [None]
  - Mitral valve disease [None]
  - Weight increased [None]
  - Product quality issue [None]
  - Swelling [None]

NARRATIVE: CASE EVENT DATE: 20140703
